FAERS Safety Report 5416171-4 (Version None)
Quarter: 2007Q3

REPORT INFORMATION
  Report Type: 
  Country: None (occurrence: None)
  Receive Date: 20070718
  Receipt Date: 20070307
  Transmission Date: 20080115
  Serious: Yes (Hospitalization, Other)
  Sender: FDA-Public Use
  Company Number: 2007018014

PATIENT
  Age: 70 Year
  Sex: Male
  Weight: 72.6 kg

DRUGS (2)
  1. CELEBREX [Suspect]
     Indication: BACK PAIN
     Dosage: 200 MG(200 MG,1 IN 1 D)
     Dates: start: 19990630, end: 19990730
  2. CELEBREX [Suspect]
     Indication: INFLAMMATION
     Dosage: 200 MG(200 MG,1 IN 1 D)
     Dates: start: 19990630, end: 19990730

REACTIONS (2)
  - INSOMNIA [None]
  - MYOCARDIAL INFARCTION [None]
